FAERS Safety Report 4523230-7 (Version None)
Quarter: 2004Q4

REPORT INFORMATION
  Report Type: 
  Country: None (occurrence: None)
  Receive Date: 20041209
  Receipt Date: 20041209
  Transmission Date: 20050328
  Serious: Yes (Disabling)
  Sender: FDA-Public Use
  Company Number: None

PATIENT
  Age: 61 Year
  Sex: Male
  Weight: 90.7194 kg

DRUGS (1)
  1. CLINDAMYCIN 150 MG [Suspect]
     Indication: DRUG USE FOR UNKNOWN INDICATION
     Dosage: 1 CAP 3 TIMES A DAY
     Dates: start: 20041105

REACTIONS (4)
  - DIZZINESS [None]
  - NAUSEA [None]
  - REFUSAL OF TREATMENT BY PATIENT [None]
  - VOMITING [None]
